FAERS Safety Report 22754582 (Version 2)
Quarter: 2023Q4

REPORT INFORMATION
  Report Type: Spontaneous
  Country: JP (occurrence: JP)
  Receive Date: 20230727
  Receipt Date: 20231110
  Transmission Date: 20240109
  Serious: Yes (Life-Threatening, Other)
  Sender: FDA-Public Use
  Company Number: JP-Merck Healthcare KGaA-2023463240

PATIENT
  Age: 59 Year
  Sex: Female

DRUGS (1)
  1. METGLUCO [Suspect]
     Active Substance: METFORMIN HYDROCHLORIDE
     Indication: Type 2 diabetes mellitus
     Route: 048

REACTIONS (3)
  - Acute kidney injury [Recovering/Resolving]
  - Campylobacter gastroenteritis [Recovering/Resolving]
  - Lactic acidosis [Recovering/Resolving]
